FAERS Safety Report 4408616-3 (Version None)
Quarter: 2004Q3

REPORT INFORMATION
  Report Type: 
  Country: None (occurrence: None)
  Receive Date: 20040723
  Receipt Date: 20040714
  Transmission Date: 20050211
  Serious: Yes (Hospitalization)
  Sender: FDA-Public Use
  Company Number: FR-2004-025821

PATIENT
  Age: 67 Year
  Sex: Female

DRUGS (6)
  1. SOTALOL HCL [Suspect]
     Dosage: 40 MG 1X DAY/ORAL
     Route: 048
  2. REMICADE [Suspect]
     Indication: RHEUMATOID ARTHRITIS
     Dosage: INTRAVENOUS
     Route: 042
     Dates: start: 20001010, end: 20031022
  3. DIANTALVIC    (PARACETAMOL, DEXTROPROPOXYPHENE HYDROCHLORIDE) [Suspect]
     Dosage: ORAL
     Route: 048
  4. DIAMINCRON (GLICLAZIDE) [Suspect]
     Dosage: 3 TAB(S) 1 X DAY
     Route: 048
  5. INDOCIN [Suspect]
     Dosage: 2 TAB(S) 1X/DAY ORAL
     Route: 048
  6. HYPERIUM (RILMENIDINE) [Suspect]
     Dosage: 2 TAB(S), 1X/DAY ORAL
     Route: 048

REACTIONS (2)
  - RECTAL CANCER [None]
  - RECTAL DISCHARGE [None]
